FAERS Safety Report 8361947-7 (Version None)
Quarter: 2012Q2

REPORT INFORMATION
  Report Type: 
  Country: None (occurrence: None)
  Receive Date: 20120515
  Receipt Date: 20120507
  Transmission Date: 20120825
  Serious: No
  Sender: FDA-Public Use
  Company Number: US-B.I. PHARMACEUTICALS,INC./RIDGEFIELD-2012-BP-10296BP

PATIENT
  Sex: Female

DRUGS (7)
  1. SPIRIVA [Suspect]
     Indication: EMPHYSEMA
     Dosage: 18 MCG
     Route: 055
     Dates: start: 20120402
  2. ADVAIR DISKUS 100/50 [Suspect]
     Indication: EMPHYSEMA
     Dates: start: 20120503
  3. ASPIRIN [Concomitant]
     Indication: ARRHYTHMIA
     Dosage: 325 MG
     Route: 048
  4. MULTI-VITAMINS [Concomitant]
     Indication: PROPHYLAXIS
  5. AMLODIPINE BESYLATE [Concomitant]
     Indication: HYPERTENSION
     Dosage: 5 MG
     Route: 048
  6. LEVOTHYROXINE SODIUM [Concomitant]
     Indication: HYPOTHYROIDISM
     Dosage: 50 MCG
     Route: 048
  7. FISH OIL [Concomitant]
     Indication: PROPHYLAXIS

REACTIONS (1)
  - MUSCULOSKELETAL CHEST PAIN [None]
